FAERS Safety Report 15570238 (Version 2)
Quarter: 2018Q4

REPORT INFORMATION
  Report Type: Spontaneous
  Country: JP (occurrence: JP)
  Receive Date: 20181031
  Receipt Date: 20181115
  Transmission Date: 20190205
  Serious: Yes (Hospitalization)
  Sender: FDA-Public Use
  Company Number: JP-FERRINGPH-2018FE06101

PATIENT

DRUGS (4)
  1. ZINC. [Concomitant]
     Active Substance: ZINC
     Dosage: 150 MG, UNK
     Route: 048
  2. CORTRIL [Concomitant]
     Active Substance: HYDROCORTISONE
     Dosage: 10 MG, UNK
     Route: 048
     Dates: start: 20181019
  3. MINIRINMELT [Suspect]
     Active Substance: DESMOPRESSIN ACETATE
     Indication: DIABETES INSIPIDUS
     Dosage: 60 ?G, 1 TIME DAILY
     Route: 048
  4. THYRADIN S [Concomitant]
     Active Substance: LEVOTHYROXINE SODIUM
     Dosage: 75 ?G, UNK
     Route: 048

REACTIONS (3)
  - Wrong technique in product usage process [Unknown]
  - Product administration error [Unknown]
  - Hospitalisation [Unknown]
